FAERS Safety Report 22195626 (Version 1)
Quarter: 2023Q2

REPORT INFORMATION
  Report Type: Other
  Country: US (occurrence: US)
  Receive Date: 20230411
  Receipt Date: 20230411
  Transmission Date: 20230721
  Serious: Yes (Death)
  Sender: FDA-Public Use
  Company Number: US-ALVOGEN-2023089525

PATIENT
  Age: 63 Year
  Sex: Male

DRUGS (4)
  1. FENTANYL [Suspect]
     Active Substance: FENTANYL
     Indication: Suicide attempt
  2. ALCOHOL [Suspect]
     Active Substance: ALCOHOL
     Indication: Suicide attempt
  3. 2-IMIDAZOLINE [Suspect]
     Active Substance: 2-IMIDAZOLINE
     Indication: Suicide attempt
  4. LOPERAMIDE [Suspect]
     Active Substance: LOPERAMIDE
     Indication: Suicide attempt

REACTIONS (1)
  - Completed suicide [Fatal]
